FAERS Safety Report 18552007 (Version 1)
Quarter: 2020Q4

REPORT INFORMATION
  Report Type: Other
  Country: JP (occurrence: JP)
  Receive Date: 20201126
  Receipt Date: 20201126
  Transmission Date: 20210114
  Serious: Yes (Hospitalization, Other)
  Sender: FDA-Public Use
  Company Number: JP-ROCHE-2720220

PATIENT
  Age: 84 Year
  Sex: Female
  Weight: 39 kg

DRUGS (10)
  1. ENTRECTINIB [Suspect]
     Active Substance: ENTRECTINIB
     Indication: LUNG ADENOCARCINOMA
     Route: 048
     Dates: start: 20201009, end: 20201028
  2. ENTRECTINIB [Suspect]
     Active Substance: ENTRECTINIB
     Route: 048
     Dates: start: 20201103, end: 20201110
  3. MAGNESIUM OXIDE. [Concomitant]
     Active Substance: MAGNESIUM OXIDE
     Dosage: DOSAGE IS UNCERTAIN.
     Route: 048
  4. LEVOFLOXACIN HEMIHYDRATE [Concomitant]
     Active Substance: LEVOFLOXACIN
     Dosage: DOSAGE IS UNCERTAIN.
     Route: 048
     Dates: start: 20201019, end: 20201023
  5. COSOPT [Concomitant]
     Active Substance: DORZOLAMIDE HYDROCHLORIDE\TIMOLOL MALEATE
     Dosage: DOSAGE IS UNCERTAIN.
     Route: 047
  6. AMLODIPINE [Concomitant]
     Active Substance: AMLODIPINE BESYLATE
     Dosage: DOSAGE IS UNCERTAIN.
     Route: 048
  7. LUMIGAN [Concomitant]
     Active Substance: BIMATOPROST
     Dosage: DOSAGE IS UNCERTAIN.
     Route: 047
  8. LEVOTHYROXINE NA [Concomitant]
     Active Substance: LEVOTHYROXINE SODIUM
     Dosage: DOSAGE IS UNCERTAIN.
     Route: 065
  9. GLANATEC [Concomitant]
     Active Substance: RIPASUDIL HYDROCHLORIDE DIHYDRATE
     Dosage: DOSAGE IS UNCERTAIN.
     Route: 047
  10. ALPHAGAN P [Concomitant]
     Active Substance: BRIMONIDINE TARTRATE
     Dosage: DOSAGE IS UNCERTAIN.
     Route: 047

REACTIONS (2)
  - Stress cardiomyopathy [Unknown]
  - Electrocardiogram QT prolonged [Recovering/Resolving]

NARRATIVE: CASE EVENT DATE: 20201028
